FAERS Safety Report 12283094 (Version 1)
Quarter: 2016Q2

REPORT INFORMATION
  Report Type: Report from Study
  Country: US (occurrence: US)
  Receive Date: 20160419
  Receipt Date: 20160419
  Transmission Date: 20160815
  Serious: Yes (Other)
  Sender: FDA-Public Use
  Company Number: ADR-2014-02321

PATIENT
  Age: 55 Year
  Sex: Female

DRUGS (4)
  1. COMPOUNDED BACLOFEN [Suspect]
     Active Substance: BACLOFEN
     Dosage: 69.94 MCG/DAY
     Route: 037
     Dates: start: 20151005
  2. COMPOUNDED BACLOFEN [Suspect]
     Active Substance: BACLOFEN
     Dosage: 50.02 MCG/DAY
     Route: 037
  3. COMPOUNDED BACLOFEN [Suspect]
     Active Substance: BACLOFEN
     Dosage: 74.95 MCG/DAY
     Route: 037
  4. COMPOUNDED BACLOFEN [Suspect]
     Active Substance: BACLOFEN
     Dosage: 40.08MCG/DAY
     Route: 037

REACTIONS (11)
  - Muscular weakness [Recovered/Resolved]
  - Seizure [Recovered/Resolved]
  - Medical device site discharge [Unknown]
  - Tinnitus [Recovered/Resolved]
  - Therapeutic response decreased [Recovered/Resolved]
  - Headache [Unknown]
  - Hypotonia [Recovered/Resolved]
  - Post lumbar puncture syndrome [Recovered/Resolved]
  - Performance status decreased [Recovered/Resolved]
  - Suture rupture [Unknown]
  - Adverse drug reaction [Unknown]

NARRATIVE: CASE EVENT DATE: 20141125
